FAERS Safety Report 4474291-5 (Version None)
Quarter: 2004Q4

REPORT INFORMATION
  Report Type: 
  Country: None (occurrence: None)
  Receive Date: 20041012
  Receipt Date: 20041012
  Transmission Date: 20050328
  Serious: Yes (Life-Threatening, Hospitalization)
  Sender: FDA-Public Use
  Company Number: None

PATIENT
  Age: 74 Year
  Sex: Female
  Weight: 74.8435 kg

DRUGS (7)
  1. PLAVIX [Suspect]
     Indication: CEREBROVASCULAR ACCIDENT
     Dosage: 75 MG PO DAILY
     Route: 048
     Dates: start: 20040801, end: 20040901
  2. ASPIRIN [Suspect]
     Indication: CEREBROVASCULAR ACCIDENT
     Dosage: 325 MG PO DAILY
     Route: 048
     Dates: start: 20040801, end: 20040901
  3. ZOCOR [Concomitant]
  4. CELEBREX [Concomitant]
  5. PROLIXIN [Concomitant]
  6. TAPAZOLE [Concomitant]
  7. HYDROCHLOROTHIAZIDE [Concomitant]

REACTIONS (4)
  - BLOOD URINE [None]
  - COLONIC HAEMORRHAGE [None]
  - HAEMORRHAGE [None]
  - RECTAL HAEMORRHAGE [None]
